FAERS Safety Report 25174887 (Version 1)
Quarter: 2025Q2

REPORT INFORMATION
  Report Type: Spontaneous
  Country: US (occurrence: US)
  Receive Date: 20250408
  Receipt Date: 20250408
  Transmission Date: 20250717
  Serious: Yes (Hospitalization)
  Sender: AMGEN
  Company Number: US-AMGEN-USASP2025064418

PATIENT
  Age: 54 Year
  Sex: Male

DRUGS (2)
  1. RITUXIMAB [Suspect]
     Active Substance: RITUXIMAB
     Indication: Waldenstrom^s macroglobulinaemia
     Route: 065
  2. BENDAMUSTINE [Concomitant]
     Active Substance: BENDAMUSTINE
     Indication: Waldenstrom^s macroglobulinaemia

REACTIONS (8)
  - Cerebral infarction [Unknown]
  - Colonic abscess [Unknown]
  - Enterocutaneous fistula [Unknown]
  - Infective aortitis [Unknown]
  - Escherichia bacteraemia [Unknown]
  - Aortic aneurysm [Unknown]
  - Thrombocytopenia [Unknown]
  - Arthralgia [Unknown]
